FAERS Safety Report 6075491-3 (Version None)
Quarter: 2009Q1

REPORT INFORMATION
  Report Type: 
  Country: None (occurrence: None)
  Receive Date: 20090212
  Receipt Date: 20090207
  Transmission Date: 20090719
  Serious: Yes (Hospitalization)
  Sender: FDA-Public Use
  Company Number: B0558584A

PATIENT
  Age: 64 Year
  Sex: Female
  Weight: 56 kg

DRUGS (4)
  1. LAPATINIB [Suspect]
     Indication: BREAST CANCER
     Dosage: 1500MG PER DAY
     Route: 048
     Dates: start: 20081128
  2. PACLITAXEL [Suspect]
     Indication: BREAST CANCER
     Dosage: 80MGM2 WEEKLY
     Route: 042
     Dates: start: 20090108
  3. ZANTAC [Concomitant]
  4. UNKNOWN DRUG [Concomitant]

REACTIONS (1)
  - PYREXIA [None]
